FAERS Safety Report 5164480-9 (Version None)
Quarter: 2006Q4

REPORT INFORMATION
  Report Type: 
  Country: None (occurrence: None)
  Receive Date: 20061127
  Receipt Date: 20061127
  Transmission Date: 20070319
  Serious: Yes (Other)
  Sender: FDA-Public Use
  Company Number: None

PATIENT
  Sex: Female
  Weight: 54.4316 kg

DRUGS (2)
  1. INTEFERON SCHERING [Suspect]
     Indication: HEPATITIS C
     Dates: start: 20041031, end: 20050829
  2. RIBAVIRIN [Suspect]

REACTIONS (4)
  - ANGER [None]
  - FATIGUE [None]
  - MYOCARDIAL INFARCTION [None]
  - PAIN [None]
